FAERS Safety Report 9929231 (Version 3)
Quarter: 2014Q4

REPORT INFORMATION
  Report Type: Spontaneous
  Country: CH (occurrence: None)
  Receive Date: 20140224
  Receipt Date: 20141001
  Transmission Date: 20150529
  Serious: Yes (Other)
  Sender: FDA-Public Use
  Company Number: 20140073

PATIENT
  Age: 24 Year
  Sex: Female

DRUGS (1)
  1. FERINJECT [Suspect]
     Active Substance: FERRIC CARBOXYMALTOSE
     Indication: FATIGUE
     Dosage: 500 MG, 2 IN 1 TOTAL, INTRAVENOUS DRIP
     Route: 041

REACTIONS (8)
  - Urine phosphorus increased [None]
  - Fatigue [None]
  - Renal tubular disorder [None]
  - Blood parathyroid hormone decreased [None]
  - Hypophosphataemia [None]
  - Asthenia [None]
  - Hypocalcaemia [None]
  - Muscular weakness [None]
